FAERS Safety Report 23324178 (Version 1)
Quarter: 2023Q4

REPORT INFORMATION
  Report Type: Report from Study
  Country: AR (occurrence: AR)
  Receive Date: 20231221
  Receipt Date: 20231221
  Transmission Date: 20240110
  Serious: No
  Sender: FDA-Public Use
  Company Number: AR-JNJFOC-20231214809

PATIENT
  Age: 62 Year
  Sex: Female
  Weight: 70 kg

DRUGS (1)
  1. SIMPONI [Suspect]
     Active Substance: GOLIMUMAB
     Indication: Rheumatoid arthritis
     Dosage: STRENGTH: 50.00 MG / 0.50 ML
     Route: 058
     Dates: start: 20190723

REACTIONS (4)
  - Needle issue [Unknown]
  - Haematoma [Unknown]
  - Injection site bruising [Unknown]
  - Product leakage [Unknown]

NARRATIVE: CASE EVENT DATE: 20231128
